FAERS Safety Report 8971386 (Version 1)
Quarter: 2012Q4

REPORT INFORMATION
  Report Type: 
  Country: US (occurrence: US)
  Receive Date: 20121218
  Receipt Date: 20121218
  Transmission Date: 20130627
  Serious: Yes (Hospitalization)
  Sender: FDA-Public Use
  Company Number: US-B.I. PHARMACEUTICALS,INC./RIDGEFIELD-2012-BI-03023BP

PATIENT
  Age: 58 Year
  Sex: Male
  Weight: 124 kg

DRUGS (8)
  1. PRADAXA [Suspect]
     Indication: ATRIAL FIBRILLATION
     Dosage: 300 mg
     Route: 048
     Dates: start: 20120501, end: 20121205
  2. LISINIPRIL [Concomitant]
     Indication: HYPERTENSION
     Dosage: 40 mg
     Route: 048
     Dates: start: 2010
  3. LOSARTIN [Concomitant]
     Indication: HYPERTENSION
     Dosage: 50 mg
     Route: 048
     Dates: start: 2010
  4. PREVASTATIN [Concomitant]
     Indication: BLOOD CHOLESTEROL INCREASED
     Dosage: 10 mg
     Route: 048
     Dates: start: 2010
  5. METFORMIN [Concomitant]
     Indication: TYPE 2 DIABETES MELLITUS
     Dosage: 1000 mg
     Route: 048
     Dates: start: 2000
  6. CARDURA [Concomitant]
     Indication: HYPERTENSION
     Dosage: 2 mg
     Route: 048
     Dates: start: 2010
  7. NADOLOL [Concomitant]
     Indication: HEART RATE IRREGULAR
     Dosage: 60 mg
     Route: 048
     Dates: start: 2007
  8. VERAPAMIL [Concomitant]
     Indication: HYPERTENSION
     Dosage: 300 mg
     Route: 048
     Dates: start: 2010

REACTIONS (1)
  - Rectal haemorrhage [Recovered/Resolved]
